FAERS Safety Report 11456663 (Version 1)
Quarter: 2015Q3

REPORT INFORMATION
  Report Type: Spontaneous
  Country: US (occurrence: US)
  Receive Date: 20150903
  Receipt Date: 20150903
  Transmission Date: 20151125
  Serious: Yes (Other)
  Sender: FDA-Public Use
  Company Number: US-TAKEDA-2014TUS004715

PATIENT

DRUGS (6)
  1. ACTOS [Suspect]
     Active Substance: PIOGLITAZONE HYDROCHLORIDE
     Indication: TYPE 2 DIABETES MELLITUS
     Dosage: DNR, UNK
     Route: 048
     Dates: start: 1999, end: 2002
  2. HUMALOG [Concomitant]
     Active Substance: INSULIN LISPRO
     Dosage: DNR, UNK
     Dates: start: 2004, end: 2008
  3. AVANDIA [Concomitant]
     Active Substance: ROSIGLITAZONE MALEATE
     Dosage: DNR DOSAGE, UNK
     Dates: start: 1999, end: 2002
  4. LANTUS [Concomitant]
     Active Substance: INSULIN GLARGINE
     Dosage: DNR, UNK
  5. ACTOS [Suspect]
     Active Substance: PIOGLITAZONE HYDROCHLORIDE
     Dosage: DNR, UNK
     Route: 048
     Dates: start: 1999, end: 2004
  6. AMARYL [Concomitant]
     Active Substance: GLIMEPIRIDE
     Dosage: 1 MG TOTAL 0.5 MG TID, UNK
     Dates: start: 2004, end: 2014

REACTIONS (1)
  - Bladder cancer [Unknown]

NARRATIVE: CASE EVENT DATE: 2000
